FAERS Safety Report 22734702 (Version 5)
Quarter: 2024Q1

REPORT INFORMATION
  Report Type: Report from Study
  Country: GB (occurrence: GB)
  Receive Date: 20230721
  Receipt Date: 20240129
  Transmission Date: 20240410
  Serious: Yes (Hospitalization, Disabling)
  Sender: FDA-Public Use
  Company Number: GB-002147023-NVSC2023GB159571

PATIENT
  Sex: Male

DRUGS (1)
  1. COSENTYX [Suspect]
     Active Substance: SECUKINUMAB
     Indication: Ankylosing spondylitis
     Dosage: 150 MG, QMO
     Route: 065

REACTIONS (5)
  - Arthropod bite [Recovered/Resolved]
  - Cellulitis [Recovered/Resolved]
  - Fatigue [Not Recovered/Not Resolved]
  - Depression [Unknown]
  - Product distribution issue [Unknown]

NARRATIVE: CASE EVENT DATE: 20230401
